FAERS Safety Report 13701321 (Version 1)
Quarter: 2017Q2

REPORT INFORMATION
  Report Type: Spontaneous
  Country: US (occurrence: US)
  Receive Date: 20170629
  Receipt Date: 20170629
  Transmission Date: 20170830
  Serious: No
  Sender: FDA-Public Use
  Company Number: US-ALLERGAN-1721074US

PATIENT
  Age: 48 Year
  Sex: Female

DRUGS (3)
  1. VIBERZI [Suspect]
     Active Substance: ELUXADOLINE
     Dosage: 1 DF, UNK
     Dates: start: 20170520
  2. VIBERZI [Suspect]
     Active Substance: ELUXADOLINE
     Indication: IRRITABLE BOWEL SYNDROME
     Dosage: 1 DF, UNK
     Dates: start: 20170519
  3. VICODIN [Concomitant]
     Active Substance: ACETAMINOPHEN\HYDROCODONE BITARTRATE
     Indication: PRODUCT USED FOR UNKNOWN INDICATION

REACTIONS (2)
  - Off label use [Unknown]
  - Euphoric mood [Unknown]
